FAERS Safety Report 20751300 (Version 3)
Quarter: 2023Q1

REPORT INFORMATION
  Report Type: Spontaneous
  Country: US (occurrence: US)
  Receive Date: 20220426
  Receipt Date: 20230210
  Transmission Date: 20230418
  Serious: No
  Sender: FDA-Public Use
  Company Number: US-LUPIN PHARMACEUTICALS INC.-2022-05970

PATIENT
  Sex: Male

DRUGS (1)
  1. ALBUTEROL SULFATE [Suspect]
     Active Substance: ALBUTEROL SULFATE
     Indication: Emphysema
     Dosage: 2 DOSAGE FORM EVERY 4 HOURS AS REQUIRED
     Route: 065
     Dates: start: 20220302

REACTIONS (4)
  - Therapeutic product ineffective [Unknown]
  - Wrong technique in product usage process [Unknown]
  - Off label use [Unknown]
  - Device delivery system issue [Unknown]

NARRATIVE: CASE EVENT DATE: 20220101
